FAERS Safety Report 5441515-7 (Version None)
Quarter: 2007Q3

REPORT INFORMATION
  Report Type: 
  Country: None (occurrence: None)
  Receive Date: 20070829
  Receipt Date: 20070821
  Transmission Date: 20080115
  Serious: Yes (Hospitalization, Other)
  Sender: FDA-Public Use
  Company Number: 163-20785-07061679

PATIENT
  Age: 65 Year
  Sex: Male

DRUGS (10)
  1. 50 [Suspect]
     Indication: MULTIPLE MYELOMA
     Dosage: 50 MG, 1 IN 1 D, ORAL
     Route: 048
     Dates: start: 20060501, end: 20070301
  2. ZANTAC 150 [Concomitant]
  3. NAPROSYN [Concomitant]
  4. VELCADE [Concomitant]
  5. NORTRIPTYLINE HCL [Concomitant]
  6. LIPITOR [Concomitant]
  7. LASIX [Concomitant]
  8. MULTIVITAMIN [Concomitant]
  9. CLONAZEPAM [Concomitant]
  10. ADVAIR DISKUS 100/50 [Concomitant]

REACTIONS (6)
  - BLOOD IMMUNOGLOBULIN M INCREASED [None]
  - DISEASE PROGRESSION [None]
  - HIP FRACTURE [None]
  - INTERSTITIAL LUNG DISEASE [None]
  - NO THERAPEUTIC RESPONSE [None]
  - PARAPROTEINAEMIA [None]
